FAERS Safety Report 20383302 (Version 2)
Quarter: 2022Q1

REPORT INFORMATION
  Report Type: Spontaneous
  Country: US (occurrence: US)
  Receive Date: 20220127
  Receipt Date: 20220223
  Transmission Date: 20220423
  Serious: No
  Sender: FDA-Public Use
  Company Number: US-TAKEDA-2022TUS003984

PATIENT
  Sex: Female

DRUGS (1)
  1. ENTYVIO [Suspect]
     Active Substance: VEDOLIZUMAB
     Indication: Product used for unknown indication
     Dosage: 300 MILLIGRAM
     Route: 042

REACTIONS (6)
  - Drug hypersensitivity [Unknown]
  - Oropharyngeal discomfort [Unknown]
  - Drug level increased [Unknown]
  - Flushing [Unknown]
  - Palpitations [Unknown]
  - Headache [Unknown]
